FAERS Safety Report 22366435 (Version 1)
Quarter: 2023Q2

REPORT INFORMATION
  Report Type: Report from Study
  Country: BR (occurrence: BR)
  Receive Date: 20230525
  Receipt Date: 20230525
  Transmission Date: 20230721
  Serious: Yes (Other)
  Sender: FDA-Public Use
  Company Number: BR-002147023-NVSC2023BR101673

PATIENT
  Age: 68 Year
  Sex: Female
  Weight: 71 kg

DRUGS (13)
  1. COSENTYX [Suspect]
     Active Substance: SECUKINUMAB
     Indication: Psoriasis
     Dosage: UNK, QMO (STARTED MORE THAN A YEAR AGO)
     Route: 065
  2. COSENTYX [Suspect]
     Active Substance: SECUKINUMAB
     Dosage: UNK
     Route: 065
     Dates: start: 20230318
  3. COSENTYX [Suspect]
     Active Substance: SECUKINUMAB
     Dosage: 500 MG, QMO(2 FILLED PENS (250 MG)
     Route: 065
  4. COSENTYX [Suspect]
     Active Substance: SECUKINUMAB
     Dosage: UNK
     Route: 065
     Dates: start: 202303
  5. HYDROCHLOROTHIAZIDE [Concomitant]
     Active Substance: HYDROCHLOROTHIAZIDE
     Indication: Hypertension
     Dosage: 1 DOSAGE FORM, QD(10 YEARS AGO)
     Route: 048
  6. LOSARTAN [Concomitant]
     Active Substance: LOSARTAN
     Indication: Hypertension
     Dosage: 1 DOSAGE FORM, QD(10 YEARS AGO)
     Route: 048
  7. PROPANOL (PROPRANOLOL HYDROCHLORIDE) [Concomitant]
     Active Substance: PROPRANOLOL HYDROCHLORIDE
     Indication: Hypertension
     Dosage: 1 DOSAGE FORM, BID (10 YEARS AGO)
     Route: 048
  8. METFORMIN HYDROCHLORIDE [Concomitant]
     Active Substance: METFORMIN HYDROCHLORIDE
     Indication: Diabetes mellitus
     Dosage: 1 DOSAGE FORM, BID (AFTER LUNCH AND AFTER DINNER)
     Route: 048
  9. SIMVASTATIN [Concomitant]
     Active Substance: SIMVASTATIN
     Indication: Blood cholesterol abnormal
     Dosage: 1 DOSAGE FORM, BID (AFTER LUNCH AND AFTER DINNER)
     Route: 048
  10. CODEINE [Concomitant]
     Active Substance: CODEINE
     Indication: Pain
     Dosage: UNK (CODEINE-MELOXICAM-THIAMINE-CYNACOBALAMINE-DIOFOSTATE AND TAMOTIDINE1 CAPSULE, EVERY 12 HOURS, 1
     Route: 048
  11. MELOXICAM [Concomitant]
     Active Substance: MELOXICAM
     Indication: Pain
     Dosage: UNK (CODEINE-MELOXICAM-THIAMINE-CYNACOBALAMINE-DIOFOSTATE AND TAMOTIDINE1 CAPSULE, EVERY 12 HOURS, 1
     Route: 048
  12. THIAMINE [Concomitant]
     Active Substance: THIAMINE
     Indication: Pain
     Dosage: UNK (CODEINE-MELOXICAM-THIAMINE-CYNACOBALAMINE-DIOFOSTATE AND TAMOTIDINE1 CAPSULE, EVERY 12 HOURS, 1
     Route: 048
  13. CYANOCOBALAMIN [Concomitant]
     Active Substance: CYANOCOBALAMIN
     Indication: Pain
     Dosage: UNK (CODEINE-MELOXICAM-THIAMINE-CYNACOBALAMINE-DIOFOSTATE AND TAMOTIDINE1 CAPSULE, EVERY 12 HOURS, 1
     Route: 048

REACTIONS (8)
  - Osteonecrosis [Not Recovered/Not Resolved]
  - Blood uric acid increased [Not Recovered/Not Resolved]
  - Movement disorder [Not Recovered/Not Resolved]
  - Influenza [Recovered/Resolved]
  - Anaemia [Not Recovered/Not Resolved]
  - Memory impairment [Not Recovered/Not Resolved]
  - Inappropriate schedule of product administration [Unknown]
  - Incorrect dose administered [Unknown]

NARRATIVE: CASE EVENT DATE: 20210101
